FAERS Safety Report 5825301-1 (Version None)
Quarter: 2008Q3

REPORT INFORMATION
  Report Type: 
  Country: None (occurrence: None)
  Receive Date: 20080729
  Receipt Date: 20080306
  Transmission Date: 20090109
  Serious: No
  Sender: FDA-Public Use
  Company Number: US-BAYER-200816671NA

PATIENT
  Age: 34 Year
  Sex: Female
  Weight: 57 kg

DRUGS (2)
  1. MIRENA [Suspect]
     Indication: CONTRACEPTION
     Route: 015
     Dates: start: 20080212
  2. ZOLOFT [Concomitant]
     Indication: DRUG USE FOR UNKNOWN INDICATION
     Dosage: TOTAL DAILY DOSE: 50 MG
     Route: 048

REACTIONS (2)
  - POST PROCEDURAL HAEMORRHAGE [None]
  - VAGINAL HAEMORRHAGE [None]
